FAERS Safety Report 13028009 (Version 1)
Quarter: 2016Q4

REPORT INFORMATION
  Report Type: Spontaneous
  Country: IT (occurrence: IT)
  Receive Date: 20161214
  Receipt Date: 20161214
  Transmission Date: 20170207
  Serious: Yes (Hospitalization, Other)
  Sender: FDA-Public Use
  Company Number: IT-BAYER-2016-229085

PATIENT
  Sex: Female

DRUGS (1)
  1. YASMIN [Suspect]
     Active Substance: DROSPIRENONE\ETHINYL ESTRADIOL
     Indication: ORAL CONTRACEPTION
     Dosage: UNK
     Dates: start: 20101207

REACTIONS (5)
  - Pelvic venous thrombosis [None]
  - Lymphadenopathy [None]
  - Hepatomegaly [None]
  - Splenomegaly [None]
  - Deep vein thrombosis [None]

NARRATIVE: CASE EVENT DATE: 20111228
